FAERS Safety Report 10254918 (Version 1)
Quarter: 2014Q2

REPORT INFORMATION
  Report Type: Spontaneous
  Country: US (occurrence: US)
  Receive Date: 20140624
  Receipt Date: 20140624
  Transmission Date: 20141212
  Serious: Yes (Hospitalization)
  Sender: FDA-Public Use
  Company Number: US-ROCHE-1421018

PATIENT
  Age: 75 Year
  Sex: Female

DRUGS (9)
  1. AVASTIN [Suspect]
     Indication: MACULAR DEGENERATION
     Dosage: BOTH EYES
     Route: 065
  2. LUCENTIS [Suspect]
     Indication: MACULAR DEGENERATION
     Dosage: BOTH EYES
     Route: 065
  3. MACUGEN [Concomitant]
     Indication: MACULAR DEGENERATION
  4. PLAVIX [Concomitant]
     Route: 065
     Dates: start: 2013
  5. ATENOLOL [Concomitant]
     Indication: HYPERTENSION
  6. LIPITOR [Concomitant]
     Route: 065
     Dates: start: 2013
  7. BABY ASPIRIN [Concomitant]
     Route: 065
     Dates: start: 2013
  8. ZYMAXID [Concomitant]
     Dosage: FIRST THING IN THE AM FOR HALF DAY
     Route: 065
  9. BETADINE [Concomitant]

REACTIONS (10)
  - Bronchitis [Unknown]
  - Atrial fibrillation [Unknown]
  - Visual acuity reduced [Not Recovered/Not Resolved]
  - Eyelid pain [Unknown]
  - Medication error [Unknown]
  - Anxiety [Recovered/Resolved]
  - Skin discolouration [Not Recovered/Not Resolved]
  - Arthropathy [Not Recovered/Not Resolved]
  - Arthritis [Not Recovered/Not Resolved]
  - Meniscus injury [Not Recovered/Not Resolved]
